FAERS Safety Report 15348484 (Version 1)
Quarter: 2018Q3

REPORT INFORMATION
  Report Type: Report from Study
  Country: US (occurrence: US)
  Receive Date: 20180904
  Receipt Date: 20180904
  Transmission Date: 20181010
  Serious: Yes (Hospitalization, Other)
  Sender: FDA-Public Use
  Company Number: US-SA-2018SA218314

PATIENT
  Age: 63 Year
  Sex: Female

DRUGS (2)
  1. INSULIN GLARGINE [Suspect]
     Active Substance: INSULIN GLARGINE
     Indication: TYPE 2 DIABETES MELLITUS
     Dosage: 30 UNITS
     Route: 058
     Dates: start: 20180729
  2. NOVOLOG [Suspect]
     Active Substance: INSULIN ASPART
     Dosage: 8 U, HS
     Route: 058

REACTIONS (5)
  - Inability to afford medication [Unknown]
  - Sepsis [Unknown]
  - Glycosylated haemoglobin increased [Unknown]
  - Organ failure [Unknown]
  - Blood glucose abnormal [Unknown]

NARRATIVE: CASE EVENT DATE: 20180729
